FAERS Safety Report 4580097-9 (Version None)
Quarter: 2005Q1

REPORT INFORMATION
  Report Type: 
  Country: None (occurrence: None)
  Receive Date: 20050210
  Receipt Date: 20050128
  Transmission Date: 20050727
  Serious: Yes (Other)
  Sender: FDA-Public Use
  Company Number: 2005-0007988

PATIENT
  Sex: Female

DRUGS (3)
  1. EMTRIVA [Suspect]
  2. ZERIT [Concomitant]
  3. REYATAZ [Concomitant]

REACTIONS (3)
  - DRUG INEFFECTIVE [None]
  - OEDEMA PERIPHERAL [None]
  - PAIN [None]
